FAERS Safety Report 17102592 (Version 1)
Quarter: 2019Q4

REPORT INFORMATION
  Report Type: Spontaneous
  Country: US (occurrence: US)
  Receive Date: 20191106
  Receipt Date: 20191106
  Transmission Date: 20200122
  Serious: Yes (Hospitalization)
  Sender: FDA-Public Use
  Company Number: None

PATIENT
  Age: 41 Year
  Sex: Female
  Weight: 75.4 kg

DRUGS (5)
  1. CYCLOPHOSPHAMIDE. [Suspect]
     Active Substance: CYCLOPHOSPHAMIDE
  2. CYTARABINE. [Suspect]
     Active Substance: CYTARABINE
  3. MERCAPTOPURINE. [Suspect]
     Active Substance: MERCAPTOPURINE
  4. ONCASPAR [Suspect]
     Active Substance: PEGASPARGASE
  5. METHOTREXATE. [Suspect]
     Active Substance: METHOTREXATE

REACTIONS (3)
  - Asthenia [None]
  - Tachycardia [None]
  - Pancytopenia [None]

NARRATIVE: CASE EVENT DATE: 20191027
